FAERS Safety Report 5545352-4 (Version None)
Quarter: 2007Q4

REPORT INFORMATION
  Report Type: 
  Country: None (occurrence: None)
  Receive Date: 20071206
  Receipt Date: 20071206
  Transmission Date: 20080405
  Serious: Yes (Hospitalization)
  Sender: FDA-Public Use
  Company Number: None

PATIENT
  Age: 47 Year
  Sex: Female
  Weight: 24.0406 kg

DRUGS (9)
  1. VALCYTE 450MG / ROCHE [Suspect]
     Indication: CHRONIC FATIGUE SYNDROME
     Dosage: 2 TABS PO DAILY
     Route: 048
     Dates: start: 20070724, end: 20071029
  2. LEVOXYL [Concomitant]
  3. CYTOMEL [Concomitant]
  4. REMERON [Concomitant]
  5. 5HTP [Concomitant]
  6. THEONINE [Concomitant]
  7. GABA [Concomitant]
  8. ADRENAL COMPLEX [Concomitant]
  9. PREGNENALINE [Concomitant]

REACTIONS (3)
  - ASCITES [None]
  - GASTROINTESTINAL DISORDER [None]
  - OVARIAN CANCER METASTATIC [None]
